FAERS Safety Report 20265581 (Version 1)
Quarter: 2021Q4

REPORT INFORMATION
  Report Type: Report from Study
  Country: FR (occurrence: FR)
  Receive Date: 20211231
  Receipt Date: 20211231
  Transmission Date: 20220303
  Serious: Yes (Hospitalization)
  Sender: FDA-Public Use
  Company Number: FR-SERVIER-S21014306

PATIENT

DRUGS (7)
  1. PEGASPARGASE [Suspect]
     Active Substance: PEGASPARGASE
     Indication: Acute lymphocytic leukaemia
     Dosage: 585 IU, ON D4
     Route: 042
     Dates: start: 20201105, end: 20201105
  2. DEXAMETHASONE [Suspect]
     Active Substance: DEXAMETHASONE
     Indication: Acute lymphocytic leukaemia
     Dosage: 4 MG, D1 TO D7, D15 TO D21
     Route: 048
     Dates: start: 20201102
  3. VINCRISTINE SULFATE [Suspect]
     Active Substance: VINCRISTINE SULFATE
     Indication: Acute lymphocytic leukaemia
     Dosage: 0.7 MG, D1, D8, D15
     Route: 042
     Dates: start: 20201102
  4. DOXORUBICIN HYDROCHLORIDE [Suspect]
     Active Substance: DOXORUBICIN HYDROCHLORIDE
     Indication: Acute lymphocytic leukaemia
     Dosage: 14 MG, D1, D8, D15
     Route: 042
     Dates: start: 20201102
  5. METHOTREXATE [Suspect]
     Active Substance: METHOTREXATE
     Indication: Acute lymphocytic leukaemia
     Dosage: 8 MG, D4
     Route: 037
     Dates: start: 20201105
  6. CYTARABINE [Suspect]
     Active Substance: CYTARABINE
     Indication: Acute lymphocytic leukaemia
     Dosage: 20 MG, D4
     Route: 037
     Dates: start: 20201105
  7. HYDROCORTISONE [Suspect]
     Active Substance: HYDROCORTISONE
     Indication: Acute lymphocytic leukaemia
     Dosage: 10 MG, D4
     Route: 037
     Dates: start: 20201105

REACTIONS (1)
  - Staphylococcal sepsis [Recovered/Resolved]

NARRATIVE: CASE EVENT DATE: 20201116
